FAERS Safety Report 19229483 (Version 1)
Quarter: 2021Q2

REPORT INFORMATION
  Report Type: Spontaneous
  Country: US (occurrence: US)
  Receive Date: 20210506
  Receipt Date: 20210506
  Transmission Date: 20210717
  Serious: No
  Sender: FDA-Public Use
  Company Number: None

PATIENT
  Age: 53 Year
  Sex: Male

DRUGS (2)
  1. TAFINLAR [Suspect]
     Active Substance: DABRAFENIB MESYLATE
     Route: 048
     Dates: start: 20190518, end: 20210417
  2. MEKINIST [Suspect]
     Active Substance: TRAMETINIB DIMETHYL SULFOXIDE
     Dates: start: 20201207, end: 20210417

REACTIONS (5)
  - Swelling face [None]
  - Dyspnoea [None]
  - Skin burning sensation [None]
  - Urticaria [None]
  - Mouth swelling [None]

NARRATIVE: CASE EVENT DATE: 20210416
